FAERS Safety Report 16749739 (Version 1)
Quarter: 2019Q4

REPORT INFORMATION
  Report Type: Spontaneous
  Country: US (occurrence: US)
  Receive Date: 20190827
  Receipt Date: 20190827
  Transmission Date: 20200122
  Serious: No
  Sender: FDA-Public Use
  Company Number: None

PATIENT
  Age: 77 Year
  Sex: Female

DRUGS (2)
  1. DOTAREM [Suspect]
     Active Substance: GADOTERATE MEGLUMINE
  2. 1 SGD624A [Concomitant]

REACTIONS (5)
  - Vessel puncture site haemorrhage [None]
  - Burning sensation [None]
  - Infusion site erythema [None]
  - Feeling hot [None]
  - Infusion site urticaria [None]

NARRATIVE: CASE EVENT DATE: 20190821
